FAERS Safety Report 7796908 (Version 2)
Quarter: 2014Q3

REPORT INFORMATION
  Report Type: Spontaneous
  Country: US (occurrence: US)
  Receive Date: 20110203
  Receipt Date: 20140708
  Transmission Date: 20150326
  Serious: No
  Sender: FDA-Public Use
  Company Number: US-BIOGENIDEC-2011BI003477

PATIENT
  Sex: Female

DRUGS (1)
  1. AVONEX [Suspect]
     Active Substance: INTERFERON BETA-1A
     Indication: MULTIPLE SCLEROSIS
     Route: 030
     Dates: start: 20110110

REACTIONS (12)
  - Pain [Recovered/Resolved]
  - Neuralgia [Unknown]
  - Back pain [Unknown]
  - Mental impairment [Unknown]
  - Limb injury [Unknown]
  - Memory impairment [Unknown]
  - Abdominal discomfort [Unknown]
  - Feeling abnormal [Unknown]
  - Malaise [Unknown]
  - Mobility decreased [Unknown]
  - Speech disorder [Not Recovered/Not Resolved]
  - Influenza like illness [Unknown]
